FAERS Safety Report 8245118-0 (Version None)
Quarter: 2012Q1

REPORT INFORMATION
  Report Type: 
  Country: None (occurrence: None)
  Receive Date: 20120329
  Receipt Date: 20120323
  Transmission Date: 20120608
  Serious: Yes (Congenital Anomaly)
  Sender: FDA-Public Use
  Company Number: SI-GLAXOSMITHKLINE-B0791546A

PATIENT

DRUGS (2)
  1. LAMICTAL [Suspect]
     Indication: IMPULSIVE BEHAVIOUR
     Dosage: 75MG PER DAY
     Route: 064
     Dates: start: 20110830
  2. ESCITALOPRAM [Concomitant]
     Indication: SOCIAL PHOBIA
     Dosage: 15MG PER DAY
     Route: 064
     Dates: start: 20101124

REACTIONS (3)
  - CLEFT LIP [None]
  - ULTRASOUND SCAN ABNORMAL [None]
  - FOETAL EXPOSURE DURING PREGNANCY [None]
